FAERS Safety Report 13604069 (Version 1)
Quarter: 2017Q2

REPORT INFORMATION
  Report Type: Spontaneous
  Country: US (occurrence: US)
  Receive Date: 20170601
  Receipt Date: 20170601
  Transmission Date: 20170830
  Serious: Yes (Other)
  Sender: FDA-Public Use
  Company Number: None

PATIENT
  Age: 55 Year
  Sex: Male
  Weight: 103.5 kg

DRUGS (15)
  1. CELECOXIB. [Concomitant]
     Active Substance: CELECOXIB
  2. BUPRENORPHINE. [Concomitant]
     Active Substance: BUPRENORPHINE
  3. PREGABALIN. [Concomitant]
     Active Substance: PREGABALIN
  4. TOUJEO [Concomitant]
     Active Substance: INSULIN GLARGINE
  5. LISINOPRIL. [Concomitant]
     Active Substance: LISINOPRIL
  6. VENLAFAXINE [Concomitant]
     Active Substance: VENLAFAXINE HYDROCHLORIDE
  7. TYLENOL [Concomitant]
     Active Substance: ACETAMINOPHEN
  8. TYLENOL PM [Concomitant]
     Active Substance: ACETAMINOPHEN\DIPHENHYDRAMINE
  9. PIOGLITAZONE. [Concomitant]
     Active Substance: PIOGLITAZONE
  10. AMBIEN [Suspect]
     Active Substance: ZOLPIDEM TARTRATE
     Indication: INSOMNIA
     Dosage: ?          QUANTITY:1 TABLET(S);?
     Route: 048
     Dates: start: 20170208, end: 20170531
  11. GLIPIZIDE. [Concomitant]
     Active Substance: GLIPIZIDE
  12. OXYCODONE [Concomitant]
     Active Substance: OXYCODONE
  13. RIZATRIPTAN. [Concomitant]
     Active Substance: RIZATRIPTAN
  14. TAMSULOSIN [Concomitant]
     Active Substance: TAMSULOSIN
  15. ARIPIPRAZOLE. [Concomitant]
     Active Substance: ARIPIPRAZOLE

REACTIONS (2)
  - Abnormal sleep-related event [None]
  - Somnambulism [None]

NARRATIVE: CASE EVENT DATE: 20170531
